FAERS Safety Report 10181293 (Version 1)
Quarter: 2014Q2

REPORT INFORMATION
  Report Type: Spontaneous
  Country: US (occurrence: US)
  Receive Date: 20140519
  Receipt Date: 20140519
  Transmission Date: 20141212
  Serious: No
  Sender: FDA-Public Use
  Company Number: US-AMGEN INC.-USASP2014031828

PATIENT
  Age: 86 Year
  Sex: Female

DRUGS (6)
  1. PROLIA [Suspect]
     Indication: OSTEOPOROSIS POSTMENOPAUSAL
     Dosage: UNK
     Route: 065
     Dates: start: 20131002
  2. HYDRALAZINE [Concomitant]
     Indication: BLOOD PRESSURE
     Dosage: 25 MG, BID
  3. COZAAR [Concomitant]
     Indication: BLOOD PRESSURE
     Dosage: 100 MG, QD
  4. METOPROLOL SUCCINATE [Concomitant]
     Indication: BLOOD PRESSURE
     Dosage: 25 MG, QD
  5. LIPITOR [Concomitant]
     Dosage: 25 MG, QD
  6. BABY ASPIRIN [Concomitant]
     Dosage: 81 MG, QD

REACTIONS (2)
  - Headache [Unknown]
  - Blood pressure increased [Unknown]
